FAERS Safety Report 16972074 (Version 1)
Quarter: 2019Q4

REPORT INFORMATION
  Report Type: Spontaneous
  Country: DE (occurrence: DE)
  Receive Date: 20191029
  Receipt Date: 20191029
  Transmission Date: 20200122
  Serious: Yes (Congenital Anomaly, Other)
  Sender: FDA-Public Use
  Company Number: DE-ALLERGAN-1943026US

PATIENT
  Sex: Male
  Weight: 3.05 kg

DRUGS (3)
  1. FEMIBION [Concomitant]
     Indication: NUTRITIONAL SUPPLEMENTATION
     Route: 064
  2. FOSFOMYCIN TROMETHAMINE - BP [Suspect]
     Active Substance: FOSFOMYCIN TROMETHAMINE
     Indication: URINARY TRACT INFECTION
     Dosage: 3000 MG, ONE SINGLE DOSE
     Route: 064
     Dates: start: 20180112, end: 20180112
  3. L-THYROXIN [Concomitant]
     Active Substance: LEVOTHYROXINE SODIUM
     Indication: HYPOTHYROIDISM
     Dosage: 75 ?G, QD
     Route: 064

REACTIONS (3)
  - Pyelocaliectasis [Recovering/Resolving]
  - Pelvic kidney [Not Recovered/Not Resolved]
  - Foetal exposure during pregnancy [Unknown]
